FAERS Safety Report 24036414 (Version 1)
Quarter: 2024Q3

REPORT INFORMATION
  Report Type: Spontaneous
  Country: SK (occurrence: SK)
  Receive Date: 20240701
  Receipt Date: 20240701
  Transmission Date: 20241017
  Serious: Yes (Other)
  Sender: ABBVIE
  Company Number: SK-ABBVIE-5817872

PATIENT
  Age: 68 Year
  Sex: Female

DRUGS (6)
  1. VENETOCLAX [Suspect]
     Active Substance: VENETOCLAX
     Indication: Acute myeloid leukaemia
     Dosage: DAY 2
     Route: 048
  2. VENETOCLAX [Suspect]
     Active Substance: VENETOCLAX
     Indication: Acute myeloid leukaemia
     Dosage: DAY 1
     Route: 048
  3. TAZOBACTAM [Concomitant]
     Active Substance: TAZOBACTAM
     Indication: Product used for unknown indication
  4. AZACITIDINE [Suspect]
     Active Substance: AZACITIDINE
     Indication: Acute myeloid leukaemia
     Dosage: 75 MG/M2, WHICH IS 138 MG?DAY 1 TO  DAY 7
     Route: 065
  5. PIPERACILLIN [Concomitant]
     Active Substance: PIPERACILLIN
     Indication: Product used for unknown indication
  6. ALLOPURINOL [Concomitant]
     Active Substance: ALLOPURINOL
     Indication: Product used for unknown indication

REACTIONS (10)
  - Acute kidney injury [Unknown]
  - Blood urea increased [Unknown]
  - Cytopenia [Unknown]
  - Electrolyte imbalance [Unknown]
  - Blood lactate dehydrogenase increased [Unknown]
  - Tumour lysis syndrome [Unknown]
  - Oliguria [Unknown]
  - Nephropathy [Unknown]
  - Anuria [Unknown]
  - Lymphocyte count abnormal [Unknown]
